FAERS Safety Report 8554251-5 (Version None)
Quarter: 2012Q3

REPORT INFORMATION
  Report Type: 
  Country: None (occurrence: None)
  Receive Date: 20120731
  Receipt Date: 20120716
  Transmission Date: 20120928
  Serious: Yes (Other)
  Sender: FDA-Public Use
  Company Number: PL-WATSON-2012-13259

PATIENT
  Age: 28 Year
  Sex: Female

DRUGS (1)
  1. ZOLPIDEM TARTRATE [Suspect]
     Indication: INITIAL INSOMNIA
     Dosage: 10-15 MG PER DOSE, 1-2 TIMES PER WEEK
     Route: 065

REACTIONS (5)
  - AGITATION [None]
  - LOGORRHOEA [None]
  - HALLUCINATION, VISUAL [None]
  - DIPLOPIA [None]
  - INTENTIONAL DRUG MISUSE [None]
